FAERS Safety Report 4554691-5 (Version None)
Quarter: 2004Q4

REPORT INFORMATION
  Report Type: 
  Country: None (occurrence: None)
  Receive Date: 20041227
  Receipt Date: 20040920
  Transmission Date: 20050328
  Serious: No
  Sender: FDA-Public Use
  Company Number: US094825

PATIENT
  Age: 65 Year
  Sex: Male
  Weight: 78.1 kg

DRUGS (4)
  1. SENSIPAR [Suspect]
     Indication: HYPERPARATHYROIDISM PRIMARY
     Dosage: 30 MG, 1 IN 1 DAYS, PO
     Route: 048
     Dates: start: 20040708
  2. FLUVASTATIN SODIUM [Concomitant]
  3. DORZOLAMIDE HYDROCHLORIDE + TIMOLOL MALEATE [Concomitant]
  4. VENLAFAXINE HCL [Concomitant]

REACTIONS (1)
  - BLOOD CALCIUM INCREASED [None]
